FAERS Safety Report 9437500 (Version 1)
Quarter: 2013Q3

REPORT INFORMATION
  Report Type: Spontaneous
  Country: GB (occurrence: None)
  Receive Date: 20130731
  Receipt Date: 20130731
  Transmission Date: 20140515
  Serious: Yes (Other)
  Sender: FDA-Public Use
  Company Number: AUR-APL-2013-06214

PATIENT
  Age: 55 Year
  Sex: Male
  Weight: 68 kg

DRUGS (6)
  1. AMLODIPINE (AMLODIPINE) [Suspect]
     Indication: PRODUCT USED FOR UNKNOWN INDICATION
     Dates: start: 20130522
  2. ACICLOVIR (ACICLOVIR) [Concomitant]
  3. AZATHIOPRINE (AZATHIOPRINE) [Concomitant]
  4. INDAPAMIDE (INDAPAMIDE) [Concomitant]
  5. PREDNISOLONE (PREDNISOLONE) [Concomitant]
  6. RAMIPRIL (RAMIPRIL) [Concomitant]

REACTIONS (1)
  - Myasthenia gravis [None]
